FAERS Safety Report 9002754 (Version 1)
Quarter: 2013Q1

REPORT INFORMATION
  Report Type: Spontaneous
  Country: US (occurrence: US)
  Receive Date: 20130107
  Receipt Date: 20130107
  Transmission Date: 20140127
  Serious: No
  Sender: FDA-Public Use
  Company Number: US-GLAXOSMITHKLINE-A0998639A

PATIENT
  Age: 56 Year
  Sex: Female
  Weight: 64.5 kg

DRUGS (15)
  1. BENLYSTA [Suspect]
     Indication: SYSTEMIC LUPUS ERYTHEMATOSUS
     Route: 042
     Dates: start: 201205
  2. IVIG [Concomitant]
  3. PLAVIX [Concomitant]
  4. SINGULAIR [Concomitant]
  5. PLAQUENIL [Concomitant]
  6. SALAGEN [Concomitant]
  7. SYNTHROID [Concomitant]
  8. LASIX [Concomitant]
  9. KLOR-CON [Concomitant]
  10. FENTANYL PATCH [Concomitant]
  11. OXYCONTIN [Concomitant]
  12. ROXICET [Concomitant]
  13. STROVITE [Concomitant]
  14. UNKNOWN MEDICATION [Concomitant]
  15. VITAMIN C [Concomitant]

REACTIONS (3)
  - Pain in extremity [Not Recovered/Not Resolved]
  - Chest pain [Unknown]
  - Fatigue [Unknown]
